FAERS Safety Report 5127044-9 (Version None)
Quarter: 2006Q4

REPORT INFORMATION
  Report Type: 
  Country: None (occurrence: None)
  Receive Date: 20061013
  Receipt Date: 20060928
  Transmission Date: 20070319
  Serious: Yes (Death, Hospitalization, Other)
  Sender: FDA-Public Use
  Company Number: JP-MERCK-0610USA01452

PATIENT
  Age: 68 Year
  Sex: Male

DRUGS (7)
  1. PEPCID RPD [Suspect]
     Route: 048
  2. CORTICOSTEROIDS (UNSPECIFIED) [Concomitant]
     Indication: PAIN
     Route: 065
  3. [THERAPY UNSPECIFIED] [Concomitant]
     Indication: PAIN
     Route: 065
  4. [THERAPY UNSPECIFIED] [Concomitant]
     Route: 065
  5. OXYCODONE HCL [Concomitant]
     Route: 065
  6. DECADRON [Concomitant]
     Route: 065
  7. CARBAMAZEPINE [Concomitant]
     Route: 065

REACTIONS (7)
  - ANOREXIA [None]
  - CONFUSIONAL STATE [None]
  - DEHYDRATION [None]
  - DELIRIUM [None]
  - DISORIENTATION [None]
  - HALLUCINATION, VISUAL [None]
  - MALIGNANT NEOPLASM PROGRESSION [None]
